FAERS Safety Report 10509266 (Version 1)
Quarter: 2014Q3

REPORT INFORMATION
  Report Type: Spontaneous
  Country: US (occurrence: None)
  Receive Date: 20140915
  Receipt Date: 20140915
  Transmission Date: 20150326
  Serious: Yes (Other)
  Sender: FDA-Public Use
  Company Number: 2014-US-003483

PATIENT
  Age: 47 Year
  Sex: Female

DRUGS (9)
  1. PRENATAL MULTIVIT (ASCORBIC ACID, CALCIUM, COLECALCIFEROL, COPPER, CYANOCOBALAMIN, FOLIC ACID, IRON, NICOTINAMIDE, PYRIDOXINE HYDROCHLORIDE, RETINOL, RIBOFLAVIN, THIAMINE HYDROCHLORIDE, TOCOPHEROL, ZINC) [Concomitant]
  2. VITAMIN B1-B12 (VITAMIN B1 IN COMBINATION WITH VITAMIN B6 AND/OR VITAMIN B12) [Concomitant]
  3. VITAMIN D3 [Concomitant]
     Active Substance: CHOLECALCIFEROL
  4. XYREM [Suspect]
     Active Substance: SODIUM OXYBATE
     Indication: NARCOLEPSY
     Route: 048
     Dates: start: 201402, end: 201402
  5. PERCOCET (OXYCODONE HYDROCHLORIDE, PARACETAMOL) [Concomitant]
  6. IRON [Concomitant]
     Active Substance: IRON
  7. FOLIC ACID (FOLIC ACID) [Concomitant]
     Active Substance: FOLIC ACID
  8. OCUVITE (ASCORBIC ACID, BETACAROTENE, COPPER, TOCOFERSOLAN, ZINC) [Concomitant]
  9. RITALIN (METHYLPHENIDATE HYDROCHLORIDE) [Concomitant]
     Active Substance: METHYLPHENIDATE HYDROCHLORIDE

REACTIONS (7)
  - Sleep apnoea syndrome [None]
  - Muscle twitching [None]
  - Malabsorption [None]
  - Hallucination [None]
  - Stupor [None]
  - Dyskinesia [None]
  - Vision blurred [None]

NARRATIVE: CASE EVENT DATE: 2014
